FAERS Safety Report 9161660 (Version 1)
Quarter: 2013Q1

REPORT INFORMATION
  Report Type: Spontaneous
  Country: US (occurrence: US)
  Receive Date: 20130314
  Receipt Date: 20130314
  Transmission Date: 20140127
  Serious: Yes (Other)
  Sender: FDA-Public Use
  Company Number: US-AMGEN-USASP2013014960

PATIENT
  Age: 75 Year
  Sex: Female

DRUGS (4)
  1. PROLIA [Suspect]
     Indication: OSTEOPOROSIS POSTMENOPAUSAL
     Dosage: 60 MG, UNK
     Dates: start: 20121113
  2. CRESTOR [Concomitant]
  3. FISH OIL [Concomitant]
  4. CALCIUM WITH VITAMIN D             /00944201/ [Concomitant]

REACTIONS (6)
  - Patella fracture [Recovering/Resolving]
  - Fall [Unknown]
  - Ligament sprain [Recovering/Resolving]
  - Contusion [Recovering/Resolving]
  - Local swelling [Recovering/Resolving]
  - Joint swelling [Recovering/Resolving]
